FAERS Safety Report 6239286-X (Version None)
Quarter: 2009Q2

REPORT INFORMATION
  Report Type: 
  Country: None (occurrence: None)
  Receive Date: 20090618
  Receipt Date: 20090602
  Transmission Date: 20091009
  Serious: Yes (Death)
  Sender: FDA-Public Use
  Company Number: CFNT-338

PATIENT
  Age: 22 Year
  Sex: Female

DRUGS (23)
  1. MEIACT MS (CEFDITOREN PIVOXIL) [Suspect]
     Dosage: 400MG, 300MG BY MOUTH
  2. MEIACT MS (CEFDITOREN PIVOXIL) [Suspect]
     Dosage: 400MG, 300MG BY MOUTH
  3. ACETAMINOPHEN [Suspect]
     Indication: OTITIS MEDIA ACUTE
     Dosage: 400 MG AS NEEDED FOR PYREXIA P.O.
     Route: 048
     Dates: start: 20090107
  4. DASEN (SERRAPEPTASE) [Suspect]
     Indication: OTITIS MEDIA ACUTE
     Dosage: 30 MG, 20 MG P.O.
     Route: 048
     Dates: start: 20090107, end: 20090110
  5. DASEN (SERRAPEPTASE) [Suspect]
     Indication: OTITIS MEDIA ACUTE
     Dosage: 30 MG, 20 MG P.O.
     Route: 048
     Dates: start: 20090117, end: 20090117
  6. CLARITH (CLARITHROMYCIN) [Suspect]
     Indication: OTITIS MEDIA ACUTE
     Dosage: 400 MG P.O.
     Route: 048
     Dates: start: 20090117, end: 20090119
  7. BETAMETHASONE [Suspect]
     Indication: DRUG ERUPTION
     Dosage: 1 MG, P.O.; 0.5 MG, P.O.; 1.5 MG P.O.
     Route: 048
     Dates: start: 20090108, end: 20090117
  8. BETAMETHASONE [Suspect]
     Indication: OTITIS MEDIA ACUTE
     Dosage: 1 MG, P.O.; 0.5 MG, P.O.; 1.5 MG P.O.
     Route: 048
     Dates: start: 20090108, end: 20090117
  9. BETAMETHASONE [Suspect]
     Indication: DRUG ERUPTION
     Dosage: 1 MG, P.O.; 0.5 MG, P.O.; 1.5 MG P.O.
     Route: 048
     Dates: start: 20090117, end: 20090119
  10. BETAMETHASONE [Suspect]
     Indication: OTITIS MEDIA ACUTE
     Dosage: 1 MG, P.O.; 0.5 MG, P.O.; 1.5 MG P.O.
     Route: 048
     Dates: start: 20090117, end: 20090119
  11. BETAMETHASONE [Suspect]
     Indication: DRUG ERUPTION
     Dosage: 1 MG, P.O.; 0.5 MG, P.O.; 1.5 MG P.O.
     Route: 048
     Dates: start: 20090119, end: 20090122
  12. BETAMETHASONE [Suspect]
     Indication: OTITIS MEDIA ACUTE
     Dosage: 1 MG, P.O.; 0.5 MG, P.O.; 1.5 MG P.O.
     Route: 048
     Dates: start: 20090119, end: 20090122
  13. BETAMETHASONE [Suspect]
     Indication: DRUG ERUPTION
     Dosage: 1 MG, P.O.; 0.5 MG, P.O.; 1.5 MG P.O.
     Route: 048
     Dates: start: 20090123, end: 20090125
  14. BETAMETHASONE [Suspect]
     Indication: OTITIS MEDIA ACUTE
     Dosage: 1 MG, P.O.; 0.5 MG, P.O.; 1.5 MG P.O.
     Route: 048
     Dates: start: 20090123, end: 20090125
  15. GASLON N (IRSOGLADINE MALEATE) [Suspect]
     Indication: OTITIS MEDIA ACUTE
     Dosage: 4 MG P.O.
     Route: 048
     Dates: start: 20090108, end: 20090122
  16. FLOMOX (CEFCAPENE PIVOXIL HYDROCHLORIDE HYDRATE) [Suspect]
     Indication: OTITIS MEDIA ACUTE
     Dosage: 300 MG P.O.
     Route: 048
     Dates: start: 20090107, end: 20090108
  17. METHYCOBAL (MECOBALAMIN) [Suspect]
     Indication: OTITIS MEDIA ACUTE
     Dosage: 1500 MICROG P.O.
     Route: 048
     Dates: start: 20090119, end: 20090122
  18. SAIREITO (CHINESE HERBAL MEDICINE) [Suspect]
     Indication: OTITIS MEDIA ACUTE
     Dosage: 7.5 MG P.O.
     Route: 048
     Dates: start: 20090122, end: 20090123
  19. PREDNISOLONE [Suspect]
     Indication: OTITIS MEDIA ACUTE
     Dosage: 5 MG P.O.
     Route: 048
     Dates: start: 20090122, end: 20090123
  20. NIPOLAZIN (MEQUITAZINE) [Suspect]
     Indication: OTITIS MEDIA ACUTE
     Dosage: 6 MG P.O.
     Route: 048
     Dates: start: 20090107, end: 20090122
  21. CELESTAMINE TAB [Suspect]
     Indication: OTITIS MEDIA ACUTE
     Dosage: 0.25 MG/2 MG P.O.
     Route: 048
     Dates: start: 20090122, end: 20090123
  22. MUCOSTA (REBAMIPIDE) [Suspect]
     Indication: DRUG ERUPTION
     Dosage: 100 MG P.O.
     Route: 048
     Dates: start: 20090123, end: 20090125
  23. ALLELOCK (OLOPATADINE HYDROCHLORIDE) [Suspect]
     Indication: DRUG ERUPTION
     Dosage: 10 MG P.O.
     Route: 048
     Dates: start: 20090123, end: 20090125

REACTIONS (12)
  - BACTERAEMIA [None]
  - CEREBRAL HAEMORRHAGE [None]
  - DISSEMINATED INTRAVASCULAR COAGULATION [None]
  - DRUG INEFFECTIVE [None]
  - ENDOCARDITIS [None]
  - LIVER DISORDER [None]
  - SEPSIS [None]
  - SPLENIC INFARCTION [None]
  - STEVENS-JOHNSON SYNDROME [None]
  - TOXIC EPIDERMAL NECROLYSIS [None]
  - TRANSFUSION-RELATED ACUTE LUNG INJURY [None]
  - VENA CAVA THROMBOSIS [None]
